FAERS Safety Report 4335784-4 (Version None)
Quarter: 2004Q2

REPORT INFORMATION
  Report Type: 
  Country: None (occurrence: None)
  Receive Date: 20040406
  Receipt Date: 20040401
  Transmission Date: 20050107
  Serious: Yes (Hospitalization)
  Sender: FDA-Public Use
  Company Number: OMPQ-PR-0404S-0224

PATIENT
  Sex: Male

DRUGS (2)
  1. OMNIPAQUE 180 [Suspect]
     Indication: INTERVERTEBRAL DISC PROTRUSION
     Dosage: SINGLE DOSE, EPIDURAL
     Route: 008
     Dates: start: 20031201, end: 20031201
  2. STEROID [Concomitant]

REACTIONS (3)
  - BLOOD PRESSURE DECREASED [None]
  - PRURITUS [None]
  - STEVENS-JOHNSON SYNDROME [None]
